FAERS Safety Report 23590325 (Version 1)
Quarter: 2024Q1

REPORT INFORMATION
  Report Type: Spontaneous
  Country: US (occurrence: None)
  Receive Date: 20240301
  Receipt Date: 20240301
  Transmission Date: 20240410
  Serious: Yes (Life-Threatening, Hospitalization)
  Sender: FDA-Public Use
  Company Number: None

PATIENT
  Age: 81 Year
  Sex: Female
  Weight: 57.4 kg

DRUGS (1)
  1. LIDOCAINE [Suspect]
     Active Substance: LIDOCAINE
     Dates: start: 20240228, end: 20240228

REACTIONS (2)
  - Seizure [None]
  - Convulsive threshold lowered [None]

NARRATIVE: CASE EVENT DATE: 20240228
